FAERS Safety Report 8783864 (Version 1)
Quarter: 2012Q4

REPORT INFORMATION
  Report Type: Spontaneous
  Country: US (occurrence: None)
  Receive Date: 20120906
  Receipt Date: 20120906
  Transmission Date: 20130627
  Serious: No
  Sender: FDA-Public Use
  Company Number: None

PATIENT
  Age: 12 Year
  Sex: Male
  Weight: 38.56 kg

DRUGS (1)
  1. GABAPENTIN [Suspect]
     Route: 048
     Dates: start: 20120817, end: 20120901

REACTIONS (3)
  - Sleep terror [None]
  - Anxiety [None]
  - Hyperacusis [None]
